FAERS Safety Report 15820371 (Version 1)
Quarter: 2019Q1

REPORT INFORMATION
  Report Type: Spontaneous
  Country: US (occurrence: US)
  Receive Date: 20190114
  Receipt Date: 20190114
  Transmission Date: 20190417
  Serious: Yes (Hospitalization)
  Sender: FDA-Public Use
  Company Number: US-ARBOR PHARMACEUTICALS, LLC-US-2019ARB000007

PATIENT
  Age: 68 Year
  Sex: Male

DRUGS (3)
  1. WARFARIN [Suspect]
     Active Substance: WARFARIN
     Indication: ATRIAL FIBRILLATION
     Dosage: 5 MG, QD
  2. SKLICE [Suspect]
     Active Substance: IVERMECTIN
     Indication: ACARODERMATITIS
     Dosage: 3 MG, UNK
  3. SKLICE [Suspect]
     Active Substance: IVERMECTIN
     Dosage: 3 MG, UNK

REACTIONS (3)
  - Anticoagulation drug level below therapeutic [Recovered/Resolved]
  - Haematoma [Not Recovered/Not Resolved]
  - Drug interaction [Unknown]
